FAERS Safety Report 4356233-6 (Version None)
Quarter: 2004Q2

REPORT INFORMATION
  Report Type: 
  Country: None (occurrence: None)
  Receive Date: 20040511
  Receipt Date: 20040428
  Transmission Date: 20050107
  Serious: Yes (Hospitalization)
  Sender: FDA-Public Use
  Company Number: US-MERCK-0405USA00025

PATIENT
  Age: 58 Year
  Sex: Male

DRUGS (1)
  1. VIOXX [Suspect]
     Indication: GOUT
     Route: 048
     Dates: start: 20040412, end: 20040414

REACTIONS (1)
  - MYOCARDIAL INFARCTION [None]
